FAERS Safety Report 15898770 (Version 1)
Quarter: 2019Q1

REPORT INFORMATION
  Report Type: Spontaneous
  Country: JP (occurrence: JP)
  Receive Date: 20190201
  Receipt Date: 20190201
  Transmission Date: 20190417
  Serious: Yes (Other)
  Sender: FDA-Public Use
  Company Number: JP-ASTRAZENECA-2018SF59443

PATIENT
  Age: 80 Year
  Sex: Male

DRUGS (2)
  1. DIART [Suspect]
     Active Substance: AZOSEMIDE
     Route: 065
  2. IMFINZI [Suspect]
     Active Substance: DURVALUMAB
     Indication: NON-SMALL CELL LUNG CANCER
     Route: 041
     Dates: start: 20180914

REACTIONS (2)
  - Platelet count decreased [Unknown]
  - Radiation pneumonitis [Unknown]
